FAERS Safety Report 20602117 (Version 1)
Quarter: 2022Q1

REPORT INFORMATION
  Report Type: Spontaneous
  Country: US (occurrence: None)
  Receive Date: 20220315
  Receipt Date: 20220315
  Transmission Date: 20220423
  Serious: Yes (Life-Threatening)
  Sender: FDA-Public Use
  Company Number: None

PATIENT
  Age: 77 Year
  Sex: Female
  Weight: 88.65 kg

DRUGS (4)
  1. TYRVAYA [Suspect]
     Active Substance: VARENICLINE TARTRATE
     Indication: Dry eye
     Dosage: OTHER QUANTITY : 1 SPRAY(S);?FREQUENCY : DAILY;?OTHER ROUTE : NOSE SPRAY;?
     Route: 050
     Dates: start: 20220309, end: 20220309
  2. OLMESARTAN [Concomitant]
     Active Substance: OLMESARTAN
  3. SPIRONOLACTONE [Concomitant]
     Active Substance: SPIRONOLACTONE
  4. ALBUTEROL [Concomitant]
     Active Substance: ALBUTEROL

REACTIONS (7)
  - Nasal discomfort [None]
  - Sneezing [None]
  - Apnoea [None]
  - Choking [None]
  - Pain in jaw [None]
  - Mouth swelling [None]
  - Fatigue [None]

NARRATIVE: CASE EVENT DATE: 20220309
